APPROVED DRUG PRODUCT: TIMOLOL MALEATE
Active Ingredient: TIMOLOL MALEATE
Strength: 5MG
Dosage Form/Route: TABLET;ORAL
Application: A072269 | Product #001
Applicant: WATSON LABORATORIES INC
Approved: Apr 11, 1989 | RLD: No | RS: No | Type: DISCN